FAERS Safety Report 12919038 (Version 1)
Quarter: 2016Q4

REPORT INFORMATION
  Report Type: Spontaneous
  Country: US (occurrence: US)
  Receive Date: 20161108
  Receipt Date: 20161108
  Transmission Date: 20170207
  Serious: No
  Sender: FDA-Public Use
  Company Number: US-009507513-1610USA016449

PATIENT
  Age: 58 Year
  Sex: Female

DRUGS (3)
  1. SODIUM BICARBONATE. [Concomitant]
     Active Substance: SODIUM BICARBONATE
  2. CALCITRIOL. [Concomitant]
     Active Substance: CALCITRIOL
  3. ZEPATIER [Suspect]
     Active Substance: ELBASVIR\GRAZOPREVIR
     Indication: CHRONIC HEPATITIS C
     Dosage: 1 TABLET (STRENGTH: 100/50 MG), QD
     Route: 048
     Dates: start: 20160924

REACTIONS (1)
  - Influenza like illness [Not Recovered/Not Resolved]

NARRATIVE: CASE EVENT DATE: 20161020
